FAERS Safety Report 15193197 (Version 2)
Quarter: 2018Q4

REPORT INFORMATION
  Report Type: Spontaneous
  Country: JP (occurrence: JP)
  Receive Date: 20180725
  Receipt Date: 20181018
  Transmission Date: 20190204
  Serious: Yes (Other)
  Sender: FDA-Public Use
  Company Number: JP-UCBSA-2018032465

PATIENT
  Age: 36 Year
  Sex: Female
  Weight: 52 kg

DRUGS (5)
  1. TOPINA [Concomitant]
     Active Substance: TOPIRAMATE
     Indication: PRODUCT USED FOR UNKNOWN INDICATION
     Dosage: 50 MG, ONCE DAILY (QD)
     Route: 048
     Dates: start: 20140609
  2. VIMPAT [Suspect]
     Active Substance: LACOSAMIDE
     Indication: EPILEPSY
     Dosage: 50 MG, ONCE DAILY (QD)
     Route: 048
     Dates: start: 20161206, end: 20161210
  3. TOPINA [Concomitant]
     Active Substance: TOPIRAMATE
     Dosage: 25 MG, ONCE DAILY (QD)
     Dates: start: 20140609
  4. ZOLPIDEM TARTRATE. [Concomitant]
     Active Substance: ZOLPIDEM TARTRATE
     Indication: PRODUCT USED FOR UNKNOWN INDICATION
     Dosage: 5 MG, ONCE DAILY (QD)
     Route: 048
  5. TEGRETOL [Concomitant]
     Active Substance: CARBAMAZEPINE
     Indication: PRODUCT USED FOR UNKNOWN INDICATION
     Dosage: 100 MG, 2X/DAY (BID)
     Route: 048
     Dates: start: 1998

REACTIONS (2)
  - Off label use [Unknown]
  - Epilepsy [Recovered/Resolved]

NARRATIVE: CASE EVENT DATE: 20161210
